FAERS Safety Report 8552408-0 (Version None)
Quarter: 2012Q3

REPORT INFORMATION
  Report Type: 
  Country: None (occurrence: None)
  Receive Date: 20120731
  Receipt Date: 20120721
  Transmission Date: 20120928
  Serious: Yes (Other)
  Sender: FDA-Public Use
  Company Number: IT-JNJFOC-20120711341

PATIENT
  Age: 35 Year
  Sex: Male
  Weight: 100 kg

DRUGS (9)
  1. RISPERDAL [Suspect]
     Indication: PRODUCT USED FOR UNKNOWN INDICATION
     Route: 048
  2. AKINETON [Suspect]
     Indication: MULTIPLE DRUG OVERDOSE INTENTIONAL
     Route: 048
     Dates: start: 20120721, end: 20120721
  3. AKINETON [Suspect]
     Indication: SELF INJURIOUS BEHAVIOUR
     Route: 048
     Dates: start: 20120721, end: 20120721
  4. PROMAZINE HYDROCHLORIDE [Suspect]
     Indication: SELF INJURIOUS BEHAVIOUR
     Route: 048
     Dates: start: 20120721, end: 20120721
  5. VALPROATE SODIUM [Suspect]
     Indication: SELF INJURIOUS BEHAVIOUR
     Route: 048
     Dates: start: 20120721, end: 20120721
  6. RISPERDAL [Suspect]
     Route: 048
     Dates: start: 20120721, end: 20120721
  7. PROMAZINE HYDROCHLORIDE [Suspect]
     Indication: MULTIPLE DRUG OVERDOSE INTENTIONAL
     Route: 048
     Dates: start: 20120721, end: 20120721
  8. VALPROATE SODIUM [Suspect]
     Indication: MULTIPLE DRUG OVERDOSE INTENTIONAL
     Route: 048
     Dates: start: 20120721, end: 20120721
  9. TRICYCLIC ANTIDEPRESSANTS [Suspect]
     Indication: SELF INJURIOUS BEHAVIOUR
     Route: 048
     Dates: start: 20120721, end: 20120721

REACTIONS (3)
  - COMA [None]
  - MULTIPLE DRUG OVERDOSE INTENTIONAL [None]
  - SELF INJURIOUS BEHAVIOUR [None]
